FAERS Safety Report 14207692 (Version 2)
Quarter: 2017Q4

REPORT INFORMATION
  Report Type: Spontaneous
  Country: US (occurrence: US)
  Receive Date: 20171121
  Receipt Date: 20171206
  Transmission Date: 20180321
  Serious: Yes (Hospitalization, Other)
  Sender: FDA-Public Use
  Company Number: US-JNJFOC-20171100085

PATIENT
  Age: 78 Year
  Sex: Female

DRUGS (27)
  1. TRIAMCINOLONE [Concomitant]
     Active Substance: TRIAMCINOLONE
     Dosage: 30 GM TUBE, 0 TOP BID
     Route: 061
     Dates: start: 20161027
  2. MULTIVITAMINS [Concomitant]
     Active Substance: VITAMINS
     Route: 048
     Dates: start: 20141012
  3. ELAVIL [Concomitant]
     Active Substance: AMITRIPTYLINE HYDROCHLORIDE
     Indication: DEPRESSION
     Dosage: 50 MG, HS
     Route: 048
     Dates: start: 20160215
  4. ELIQUIS [Concomitant]
     Active Substance: APIXABAN
     Dosage: 5 MG, Q12HR
     Route: 048
     Dates: start: 20171020
  5. INDERAL [Concomitant]
     Active Substance: PROPRANOLOL HYDROCHLORIDE
     Route: 048
     Dates: start: 20141121
  6. DIFLUCAN [Concomitant]
     Active Substance: FLUCONAZOLE
     Indication: ACUTE MYELOID LEUKAEMIA
     Route: 048
     Dates: start: 20141012
  7. BACTRIM DS [Concomitant]
     Active Substance: SULFAMETHOXAZOLE\TRIMETHOPRIM
     Indication: ACUTE MYELOID LEUKAEMIA
     Dosage: 1 DF, MON, WED, FRI
     Route: 048
     Dates: start: 20150602
  8. CELLCEPT [Concomitant]
     Active Substance: MYCOPHENOLATE MOFETIL\MYCOPHENOLATE MOFETIL HYDROCHLORIDE
     Dates: start: 20171018, end: 2017
  9. VALTREX [Concomitant]
     Active Substance: VALACYCLOVIR HYDROCHLORIDE
     Indication: ACUTE MYELOID LEUKAEMIA
     Route: 048
     Dates: start: 20170921
  10. COLCRYS [Concomitant]
     Active Substance: COLCHICINE
     Indication: GRAFT VERSUS HOST DISEASE
     Route: 048
     Dates: start: 20171018
  11. CALCIUM CARBONATE W/COLECALCIFEROL [Concomitant]
     Active Substance: CALCIUM CARBONATE\CHOLECALCIFEROL
     Route: 048
     Dates: start: 20151027
  12. POLYTRIM [Concomitant]
     Active Substance: POLYMYXIN B SULFATE\TRIMETHOPRIM SULFATE
     Indication: GRAFT VERSUS HOST DISEASE
     Dosage: 10 ML BOTTLE, 1 DROP OP 4XD
     Dates: start: 20170928
  13. IMBRUVICA [Suspect]
     Active Substance: IBRUTINIB
     Indication: CHRONIC GRAFT VERSUS HOST DISEASE
     Route: 048
     Dates: start: 20170825, end: 20171128
  14. FENOFIBRATE. [Concomitant]
     Active Substance: FENOFIBRATE
     Route: 048
     Dates: start: 20170209
  15. FEMARA [Concomitant]
     Active Substance: LETROZOLE
     Route: 048
     Dates: start: 20150623
  16. POLYTRIM [Concomitant]
     Active Substance: POLYMYXIN B SULFATE\TRIMETHOPRIM SULFATE
     Indication: ACUTE MYELOID LEUKAEMIA
     Dosage: 10 ML BOTTLE, 1 DROP OP 4XD
     Dates: start: 20170928
  17. COLCRYS [Concomitant]
     Active Substance: COLCHICINE
     Indication: ACUTE MYELOID LEUKAEMIA
     Route: 048
     Dates: start: 20171018
  18. ASPIRIN. [Concomitant]
     Active Substance: ASPIRIN
     Route: 048
     Dates: start: 20161220
  19. CAMPHOR W/MENTHOL/PHENOL [Concomitant]
     Dosage: 222 ML, TP
     Dates: start: 20170821
  20. CALCIUM [Concomitant]
     Active Substance: CALCIUM
  21. DIFLUCAN [Concomitant]
     Active Substance: FLUCONAZOLE
     Indication: GRAFT VERSUS HOST DISEASE
     Route: 048
     Dates: start: 20141012
  22. CARDIZEM [Concomitant]
     Active Substance: DILTIAZEM HYDROCHLORIDE
     Indication: HYPERTENSION
  23. IMBRUVICA [Suspect]
     Active Substance: IBRUTINIB
     Indication: CHRONIC GRAFT VERSUS HOST DISEASE
     Route: 048
     Dates: start: 20170915, end: 20171018
  24. VALTREX [Concomitant]
     Active Substance: VALACYCLOVIR HYDROCHLORIDE
     Indication: GRAFT VERSUS HOST DISEASE
     Route: 048
     Dates: start: 20170921
  25. BACTRIM DS [Concomitant]
     Active Substance: SULFAMETHOXAZOLE\TRIMETHOPRIM
     Indication: GRAFT VERSUS HOST DISEASE
     Dosage: 1 DF, MON, WED, FRI
     Route: 048
     Dates: start: 20150602
  26. PROTONIX [Concomitant]
     Active Substance: PANTOPRAZOLE SODIUM
     Indication: GASTROOESOPHAGEAL REFLUX DISEASE
     Route: 048
     Dates: start: 20100603
  27. SYNTHROID [Concomitant]
     Active Substance: LEVOTHYROXINE SODIUM
     Indication: HYPOTHYROIDISM
     Dosage: 75 MCG, QD
     Route: 048
     Dates: start: 20150915

REACTIONS (6)
  - Atrial fibrillation [Recovered/Resolved]
  - Intestinal operation [Unknown]
  - Off label use [Unknown]
  - Product use issue [Unknown]
  - Atrial flutter [Unknown]
  - Clostridium difficile infection [Unknown]

NARRATIVE: CASE EVENT DATE: 20170825
